FAERS Safety Report 7276580-8 (Version None)
Quarter: 2011Q1

REPORT INFORMATION
  Report Type: 
  Country: None (occurrence: None)
  Receive Date: 20110204
  Receipt Date: 20110120
  Transmission Date: 20110831
  Serious: Yes (Other)
  Sender: FDA-Public Use
  Company Number: US-BAYER-201026680NA

PATIENT
  Sex: Male
  Weight: 80 kg

DRUGS (18)
  1. PROHANCE [Suspect]
     Indication: ANGIOGRAM
  2. PROHANCE [Suspect]
     Indication: NUCLEAR MAGNETIC RESONANCE IMAGING
  3. HECTOROL [Concomitant]
  4. MAGNEVIST [Suspect]
     Indication: NUCLEAR MAGNETIC RESONANCE IMAGING
     Dates: start: 20070725, end: 20070725
  5. UNKNOWN GBCA [Suspect]
     Indication: ANGIOGRAM
     Route: 042
     Dates: start: 20061019, end: 20061019
  6. OMNISCAN [Suspect]
     Indication: ANGIOGRAM
  7. COUMADIN [Concomitant]
  8. OMNISCAN [Suspect]
  9. LASIX [Concomitant]
  10. PHOSLO [Concomitant]
  11. MULTIHANCE [Suspect]
     Indication: ANGIOGRAM
  12. OPTIMARK [Suspect]
     Indication: NUCLEAR MAGNETIC RESONANCE IMAGING
  13. OPTIMARK [Suspect]
  14. NOVOLOG [Concomitant]
  15. MAGNEVIST [Suspect]
     Indication: ANGIOGRAM
  16. MULTIHANCE [Suspect]
     Indication: NUCLEAR MAGNETIC RESONANCE IMAGING
  17. LANTUS [Concomitant]
  18. ESTROGENIC SUBSTANCE [Concomitant]

REACTIONS (20)
  - PAIN [None]
  - PURPURA [None]
  - JOINT CONTRACTURE [None]
  - ERYTHEMA [None]
  - SKIN INDURATION [None]
  - MUSCULOSKELETAL STIFFNESS [None]
  - SKIN HYPERTROPHY [None]
  - PIGMENTATION DISORDER [None]
  - SKIN PLAQUE [None]
  - JOINT RANGE OF MOTION DECREASED [None]
  - SKIN TIGHTNESS [None]
  - MACULE [None]
  - LIGAMENT DISORDER [None]
  - NEPHROGENIC SYSTEMIC FIBROSIS [None]
  - OEDEMA PERIPHERAL [None]
  - RASH [None]
  - ANHEDONIA [None]
  - MUSCLE TIGHTNESS [None]
  - PAIN IN EXTREMITY [None]
  - PAPULE [None]
